FAERS Safety Report 7844594-2 (Version None)
Quarter: 2011Q4

REPORT INFORMATION
  Report Type: 
  Country: None (occurrence: None)
  Receive Date: 20111025
  Receipt Date: 20111013
  Transmission Date: 20120403
  Serious: Yes (Hospitalization)
  Sender: FDA-Public Use
  Company Number: US-JNJFOC-20111010047

PATIENT
  Sex: Female
  Weight: 117.94 kg

DRUGS (6)
  1. REMICADE [Suspect]
     Route: 042
     Dates: start: 20101001, end: 20101101
  2. REMICADE [Suspect]
     Route: 042
     Dates: start: 20110201
  3. REMICADE [Suspect]
     Indication: FIBROMYALGIA
     Route: 042
     Dates: start: 20110201
  4. ZESTRIL [Concomitant]
     Indication: BLOOD PRESSURE
     Route: 048
  5. REMICADE [Suspect]
     Indication: RHEUMATOID ARTHRITIS
     Route: 042
     Dates: start: 20101001, end: 20101101
  6. SYNTHROID [Concomitant]
     Route: 048

REACTIONS (3)
  - DIABETES MELLITUS [None]
  - BLOOD GLUCOSE INCREASED [None]
  - ARTHRALGIA [None]
